FAERS Safety Report 10912428 (Version 1)
Quarter: 2015Q1

REPORT INFORMATION
  Report Type: Spontaneous
  Country: DK (occurrence: None)
  Receive Date: 20150310
  Receipt Date: 20150310
  Transmission Date: 20150721
  Serious: Yes (Disabling)
  Sender: FDA-Public Use
  Company Number: E2B_80006607

PATIENT
  Sex: Female

DRUGS (2)
  1. ELTROXIN [Suspect]
     Active Substance: LEVOTHYROXINE
     Indication: AUTOIMMUNE THYROIDITIS
     Dosage: TAKEN ELTROXIN FOR ALMOST 10 YEARS (62.5 MCG, 2 IN1 D)
     Route: 048
     Dates: start: 201410
  2. EUTHYROX [Suspect]
     Active Substance: LEVOTHYROXINE SODIUM
     Indication: AUTOIMMUNE THYROIDITIS
     Route: 048
     Dates: start: 201411

REACTIONS (19)
  - Feeling cold [None]
  - No therapeutic response [None]
  - Palpitations [None]
  - Insomnia [None]
  - Hunger [None]
  - Pruritus [None]
  - Arthralgia [None]
  - Dyspepsia [None]
  - Impaired work ability [None]
  - Constipation [None]
  - Restlessness [None]
  - Peripheral coldness [None]
  - Weight increased [None]
  - Hypertension [None]
  - Abdominal pain [None]
  - Neck pain [None]
  - Diarrhoea [None]
  - Dyspnoea [None]
  - Myalgia [None]
